FAERS Safety Report 20854662 (Version 1)
Quarter: 2022Q2

REPORT INFORMATION
  Report Type: Spontaneous
  Country: US (occurrence: None)
  Receive Date: 20220519
  Receipt Date: 20220519
  Transmission Date: 20220721
  Serious: Yes (Other)
  Sender: FDA-Public Use
  Company Number: None

PATIENT
  Sex: Female

DRUGS (7)
  1. ALVESCO [Suspect]
     Active Substance: CICLESONIDE
     Indication: Inflammation
     Dosage: FREQUENCY : TWICE A DAY;?
     Route: 048
     Dates: start: 20220512, end: 20220513
  2. SPIRIVA [Concomitant]
     Active Substance: TIOTROPIUM BROMIDE MONOHYDRATE
  3. LISINOPRIL [Concomitant]
     Active Substance: LISINOPRIL
  4. ALBUTEROL [Concomitant]
     Active Substance: ALBUTEROL
  5. D2 [Concomitant]
  6. VITAMIN B12 [Concomitant]
     Active Substance: CYANOCOBALAMIN
  7. VITAMINS [Concomitant]
     Active Substance: VITAMINS

REACTIONS (9)
  - Dyspepsia [None]
  - Pain [None]
  - Insomnia [None]
  - Dry throat [None]
  - Cough [None]
  - Anxiety [None]
  - Back pain [None]
  - Candida infection [None]
  - Stomatitis [None]

NARRATIVE: CASE EVENT DATE: 20220512
